FAERS Safety Report 7653904-0 (Version None)
Quarter: 2011Q3

REPORT INFORMATION
  Report Type: 
  Country: None (occurrence: None)
  Receive Date: 20110803
  Receipt Date: 20110727
  Transmission Date: 20111222
  Serious: Yes (Hospitalization, Other)
  Sender: FDA-Public Use
  Company Number: US-ELI_LILLY_AND_COMPANY-US200910004064

PATIENT
  Sex: Male
  Weight: 113.38 kg

DRUGS (24)
  1. BYETTA [Suspect]
     Indication: TYPE 2 DIABETES MELLITUS
     Dosage: 5 UG, 2/D
     Route: 058
     Dates: start: 20060608, end: 20060711
  2. FISH OIL [Concomitant]
  3. LASIX [Concomitant]
     Dosage: 40 MG, DAILY (1/D)
  4. EFFEXOR [Concomitant]
  5. HUMALOG MIX                             /SPA/ [Concomitant]
  6. NIACIN [Concomitant]
     Dosage: 500 MG, UNK
  7. POTASSIUM CHLORIDE [Concomitant]
     Dosage: 25 MEQ, QD
  8. BYETTA [Suspect]
     Dosage: 10 UG, 2/D
     Route: 058
     Dates: start: 20060711, end: 20090801
  9. NEXIUM [Concomitant]
     Dosage: 20 MG, UNK
  10. ZETIA [Concomitant]
     Dosage: 10 MG, UNK
  11. PAROXETINE HCL [Concomitant]
     Dosage: 20 MG, DAILY (1/D)
  12. NICOTINE [Concomitant]
     Route: 062
  13. METOLAZONE [Concomitant]
     Dosage: 5 MG, DAILY (1/D)
  14. IMDUR [Concomitant]
  15. WARFARIN [Concomitant]
  16. DIOVAN [Concomitant]
  17. VALSARTAN [Concomitant]
     Dosage: 80 MG, DAILY (1/D)
  18. METFORMIN HCL [Concomitant]
     Dosage: 1000 MG, 2/D
  19. AVANDIA [Concomitant]
     Dosage: 4 MG, DAILY (1/D)
  20. TRICOR [Concomitant]
     Dosage: 160 MG, DAILY (1/D)
  21. METOPROLOL TARTRATE [Concomitant]
     Dosage: 100 MG, DAILY (1/D)
  22. HUMULIN /PRI/ [Concomitant]
  23. AMIODARONE HCL [Concomitant]
     Dosage: 200 MG, DAILY (1/D)
  24. ZOCOR [Concomitant]
     Dosage: 80 MG, DAILY (1/D)

REACTIONS (5)
  - PANCREATITIS ACUTE [None]
  - OFF LABEL USE [None]
  - CHOLELITHIASIS [None]
  - RENAL DISORDER [None]
  - PANCREATITIS RELAPSING [None]
